FAERS Safety Report 7030299-7 (Version None)
Quarter: 2010Q4

REPORT INFORMATION
  Report Type: 
  Country: None (occurrence: None)
  Receive Date: 20101006
  Receipt Date: 20100923
  Transmission Date: 20110411
  Serious: Yes (Other)
  Sender: FDA-Public Use
  Company Number: BR-ELI_LILLY_AND_COMPANY-BR201009006525

PATIENT
  Sex: Male

DRUGS (1)
  1. ZYPREXA [Suspect]
     Dosage: UNK, UNKNOWN
     Route: 065
     Dates: start: 19940101

REACTIONS (4)
  - CONFUSIONAL STATE [None]
  - CRYING [None]
  - DISTURBANCE IN SOCIAL BEHAVIOUR [None]
  - SUICIDAL IDEATION [None]
